FAERS Safety Report 9411568 (Version 1)
Quarter: 2013Q3

REPORT INFORMATION
  Report Type: Spontaneous
  Country: AT (occurrence: AT)
  Receive Date: 20130722
  Receipt Date: 20130722
  Transmission Date: 20140515
  Serious: Yes (Other)
  Sender: FDA-Public Use
  Company Number: AT-BAYER-2013-085031

PATIENT
  Sex: Female

DRUGS (2)
  1. MIRENA [Suspect]
     Dosage: 20 MCG/24HR, CONT
     Route: 015
     Dates: start: 20090430, end: 20130701
  2. DUPHASTON [Concomitant]
     Indication: MENSTRUAL CYCLE MANAGEMENT
     Dosage: UNK
     Dates: start: 201102

REACTIONS (4)
  - Device use error [None]
  - Device colour issue [None]
  - Genital haemorrhage [None]
  - Invasive ductal breast carcinoma [None]
